APPROVED DRUG PRODUCT: MILRINONE LACTATE
Active Ingredient: MILRINONE LACTATE
Strength: EQ 1MG BASE/ML
Dosage Form/Route: INJECTABLE;INJECTION
Application: A077966 | Product #001 | TE Code: AP
Applicant: HIKMA FARMACEUTICA (PORTUGAL) SA
Approved: Dec 3, 2010 | RLD: No | RS: Yes | Type: RX